FAERS Safety Report 8006581-3 (Version None)
Quarter: 2011Q4

REPORT INFORMATION
  Report Type: 
  Country: None (occurrence: None)
  Receive Date: 20111227
  Receipt Date: 20111214
  Transmission Date: 20120403
  Serious: Yes (Hospitalization)
  Sender: FDA-Public Use
  Company Number: JP-ELI_LILLY_AND_COMPANY-JP201112001496

PATIENT
  Age: 51 Year
  Sex: Female

DRUGS (3)
  1. ZYPREXA [Suspect]
     Dosage: 5 MG, QD
     Route: 048
  2. ZYPREXA [Suspect]
     Indication: BIPOLAR DISORDER
     Dosage: 5 MG, QD
     Route: 048
  3. ZYPREXA [Suspect]
     Dosage: 5 MG, QD
     Route: 048

REACTIONS (2)
  - HYPERSENSITIVITY [None]
  - PSYCHOTIC DISORDER [None]
